FAERS Safety Report 9475578 (Version 1)
Quarter: 2013Q3

REPORT INFORMATION
  Report Type: Spontaneous
  Country: GB (occurrence: GB)
  Receive Date: 20130826
  Receipt Date: 20130826
  Transmission Date: 20140515
  Serious: Yes (Other)
  Sender: FDA-Public Use
  Company Number: GB-MERCK-1308GBR010371

PATIENT
  Sex: Male

DRUGS (5)
  1. COZAAR 12,5 MG [Suspect]
  2. LEVOTHYROXINE SODIUM [Suspect]
     Indication: HYPOTHYROIDISM
     Dosage: 150 MICROGRAM, QD
  3. LEVOTHYROXINE SODIUM [Suspect]
     Dosage: 125 MICROGRAM, QD
  4. LEVOTHYROXINE SODIUM [Suspect]
     Dosage: 100 MICROGRAM, QD
  5. LEVOTHYROXINE SODIUM [Suspect]
     Dosage: 25 MICROGRAM, QD

REACTIONS (2)
  - Hyperthyroidism [Unknown]
  - Dyspnoea [Unknown]
